FAERS Safety Report 13645367 (Version 1)
Quarter: 2017Q2

REPORT INFORMATION
  Report Type: Spontaneous
  Country: US (occurrence: US)
  Receive Date: 20170612
  Receipt Date: 20170612
  Transmission Date: 20170830
  Serious: Yes (Hospitalization)
  Sender: FDA-Public Use
  Company Number: US-ASTRAZENECA-2017SE60618

PATIENT
  Age: 34 Year
  Sex: Female
  Weight: 59 kg

DRUGS (22)
  1. QUETIAPINE FUMARATE. [Suspect]
     Active Substance: QUETIAPINE FUMARATE
     Indication: AFFECTIVE DISORDER
     Route: 048
  2. QUETIAPINE FUMARATE. [Suspect]
     Active Substance: QUETIAPINE FUMARATE
     Indication: SLEEP DISORDER
     Route: 048
  3. QUETIAPINE FUMARATE. [Suspect]
     Active Substance: QUETIAPINE FUMARATE
     Indication: AFFECTIVE DISORDER
     Route: 048
  4. PLAVIX [Concomitant]
     Active Substance: CLOPIDOGREL BISULFATE
     Indication: STENT PLACEMENT
     Route: 048
     Dates: end: 201702
  5. URECHOLINE [Concomitant]
     Active Substance: BETHANECHOL CHLORIDE
     Indication: URINARY RETENTION
     Route: 048
  6. NOVOLOG [Concomitant]
     Active Substance: INSULIN ASPART
     Route: 058
  7. QUETIAPINE FUMARATE. [Suspect]
     Active Substance: QUETIAPINE FUMARATE
     Indication: AFFECTIVE DISORDER
     Route: 048
     Dates: start: 2013
  8. QUETIAPINE FUMARATE. [Suspect]
     Active Substance: QUETIAPINE FUMARATE
     Indication: AFFECTIVE DISORDER
     Route: 048
     Dates: start: 201702
  9. QUETIAPINE FUMARATE. [Suspect]
     Active Substance: QUETIAPINE FUMARATE
     Indication: SLEEP DISORDER
     Route: 048
  10. QUETIAPINE FUMARATE. [Suspect]
     Active Substance: QUETIAPINE FUMARATE
     Indication: SLEEP DISORDER
     Route: 048
  11. CRANBERRY SUPPLEMENT [Concomitant]
     Indication: URINARY TRACT INFECTION
     Dosage: DAILY
     Route: 048
  12. LISINOPRIL. [Suspect]
     Active Substance: LISINOPRIL
     Indication: BLOOD PRESSURE ABNORMAL
     Route: 048
  13. QUETIAPINE FUMARATE. [Suspect]
     Active Substance: QUETIAPINE FUMARATE
     Indication: SLEEP DISORDER
     Route: 048
     Dates: start: 2013
  14. PROBIOTIC [Concomitant]
     Active Substance: PROBIOTICS NOS
     Indication: COLON INJURY
     Dosage: DAILY
     Route: 048
  15. PRAVACHOL [Concomitant]
     Active Substance: PRAVASTATIN SODIUM
     Indication: PROPHYLAXIS
     Route: 048
  16. COREG [Concomitant]
     Active Substance: CARVEDILOL
     Indication: BLOOD PRESSURE ABNORMAL
     Route: 048
  17. LEVEMIR [Concomitant]
     Active Substance: INSULIN DETEMIR
     Dosage: 20 UNITS TWICE DAILY
     Route: 058
  18. QUETIAPINE FUMARATE. [Suspect]
     Active Substance: QUETIAPINE FUMARATE
     Indication: SLEEP DISORDER
     Route: 048
     Dates: start: 201702
  19. QUETIAPINE FUMARATE. [Suspect]
     Active Substance: QUETIAPINE FUMARATE
     Indication: AFFECTIVE DISORDER
     Route: 048
  20. MULTIVITAMIN [Concomitant]
     Active Substance: VITAMINS
     Indication: SUPPLEMENTATION THERAPY
     Dosage: DAILY
     Route: 048
  21. ASPIRIN. [Concomitant]
     Active Substance: ASPIRIN
     Indication: STENT PLACEMENT
     Route: 048
     Dates: end: 201702
  22. DULOXETINE. [Concomitant]
     Active Substance: DULOXETINE
     Indication: DEPRESSION
     Route: 048

REACTIONS (18)
  - Chronic kidney disease [Not Recovered/Not Resolved]
  - Vitamin D deficiency [Unknown]
  - Pruritus [Unknown]
  - Renal disorder [Unknown]
  - Scratch [Unknown]
  - Somnolence [Not Recovered/Not Resolved]
  - Drug dose omission [Not Recovered/Not Resolved]
  - Product use in unapproved indication [Unknown]
  - Type 1 diabetes mellitus [Not Recovered/Not Resolved]
  - Gastrointestinal haemorrhage [Unknown]
  - Hypertension [Unknown]
  - Off label use [Unknown]
  - Glomerular filtration rate decreased [Unknown]
  - Urinary tract infection [Unknown]
  - Vascular dementia [Unknown]
  - Loss of consciousness [Not Recovered/Not Resolved]
  - Dyspepsia [Unknown]
  - Affective disorder [Unknown]

NARRATIVE: CASE EVENT DATE: 1980
